FAERS Safety Report 20024340 (Version 4)
Quarter: 2022Q1

REPORT INFORMATION
  Report Type: Spontaneous
  Country: US (occurrence: US)
  Receive Date: 20211102
  Receipt Date: 20220218
  Transmission Date: 20220423
  Serious: Yes (Other)
  Sender: FDA-Public Use
  Company Number: US-drreddys-SPO/USA/21/0143313

PATIENT
  Age: 39 Year
  Sex: Female

DRUGS (1)
  1. ZENATANE [Suspect]
     Active Substance: ISOTRETINOIN
     Indication: Product used for unknown indication
     Dosage: RMA ISSUE DATE :25 SEPTEMBER 2021 7:17:16 PM
     Dates: start: 20210925, end: 20211027

REACTIONS (2)
  - Exposure during pregnancy [Unknown]
  - Pregnancy test false positive [Unknown]

NARRATIVE: CASE EVENT DATE: 20211027
